FAERS Safety Report 4395800-0 (Version None)
Quarter: 2004Q3

REPORT INFORMATION
  Report Type: 
  Country: None (occurrence: None)
  Receive Date: 20040713
  Receipt Date: 20040525
  Transmission Date: 20050211
  Serious: Yes (Hospitalization)
  Sender: FDA-Public Use
  Company Number: US-ROCHE-369072

PATIENT
  Age: 49 Year
  Sex: Female

DRUGS (4)
  1. CAPECITABINE [Suspect]
     Indication: BREAST CANCER
     Dosage: ADMINISTERED FOR 14 DAYS FOLLOWED BY 7 DAYS REST.
     Route: 048
     Dates: start: 20040408, end: 20040422
  2. IXABEPILONE [Suspect]
     Indication: BREAST CANCER
     Route: 042
     Dates: start: 20040408, end: 20040428
  3. BENADRYL [Concomitant]
     Dates: start: 20040428, end: 20040428
  4. ZANTAC [Concomitant]
     Dates: start: 20040428, end: 20040428

REACTIONS (7)
  - CYSTITIS [None]
  - DEHYDRATION [None]
  - FLANK PAIN [None]
  - HAEMATURIA [None]
  - NEPHROLITHIASIS [None]
  - PALLOR [None]
  - PALMAR-PLANTAR ERYTHRODYSAESTHESIA SYNDROME [None]
